FAERS Safety Report 8942138 (Version 1)
Quarter: 2012Q4

REPORT INFORMATION
  Report Type: 
  Country: KR (occurrence: KR)
  Receive Date: 20121130
  Receipt Date: 20121130
  Transmission Date: 20130627
  Serious: Yes (Hospitalization)
  Sender: FDA-Public Use
  Company Number: KR-VIIV HEALTHCARE LIMITED-B0848747A

PATIENT
  Age: 39 Year
  Sex: Male

DRUGS (2)
  1. ABACAVIR SULFATE + LAMIVUDINE [Suspect]
     Indication: HIV INFECTION
     Route: 065
  2. LOPINAVIR + RITONAVIR [Concomitant]
     Indication: HIV INFECTION
     Route: 065

REACTIONS (10)
  - Hypersensitivity [Recovered/Resolved]
  - Pyrexia [Recovered/Resolved]
  - Myalgia [Recovered/Resolved]
  - Abdominal pain [Recovered/Resolved]
  - Diarrhoea [Recovered/Resolved]
  - Rash generalised [Recovered/Resolved]
  - Hepatic congestion [Unknown]
  - Oedema [Unknown]
  - Splenomegaly [Unknown]
  - Hepatic function abnormal [Recovered/Resolved]
